FAERS Safety Report 5917745-4 (Version None)
Quarter: 2008Q4

REPORT INFORMATION
  Report Type: 
  Country: None (occurrence: None)
  Receive Date: 20081014
  Receipt Date: 20080820
  Transmission Date: 20090506
  Serious: No
  Sender: FDA-Public Use
  Company Number: US-BAYER-200832330NA

PATIENT
  Sex: Female

DRUGS (2)
  1. ULTRAVIST 300 [Suspect]
     Indication: COMPUTERISED TOMOGRAM
     Dosage: TOTAL DAILY DOSE: 100 ML
     Route: 042
  2. PREDNISONE [Concomitant]
     Dosage: TOTAL DAILY DOSE: 50  MG
     Route: 048

REACTIONS (3)
  - PRURITUS [None]
  - RASH [None]
  - URTICARIA [None]
